FAERS Safety Report 6258617-8 (Version None)
Quarter: 2009Q3

REPORT INFORMATION
  Report Type: 
  Country: None (occurrence: None)
  Receive Date: 20090707
  Receipt Date: 20090702
  Transmission Date: 20100115
  Serious: Yes (Other)
  Sender: FDA-Public Use
  Company Number: US-JNJFOC-20071000087

PATIENT
  Sex: Female
  Weight: 79.38 kg

DRUGS (1)
  1. DURAGESIC-100 [Suspect]
     Indication: PAIN
     Route: 062

REACTIONS (8)
  - BODY HEIGHT DECREASED [None]
  - CEREBROVASCULAR ACCIDENT [None]
  - CONVULSION [None]
  - DISORIENTATION [None]
  - LOSS OF CONSCIOUSNESS [None]
  - MALAISE [None]
  - NARCOTIC INTOXICATION [None]
  - PRODUCT QUALITY ISSUE [None]
